FAERS Safety Report 19973519 (Version 1)
Quarter: 2021Q4

REPORT INFORMATION
  Report Type: Spontaneous
  Country: US (occurrence: US)
  Receive Date: 20211020
  Receipt Date: 20211020
  Transmission Date: 20220303
  Serious: No
  Sender: FDA-Public Use
  Company Number: US-BAYER-2021A230627

PATIENT
  Age: 78 Year
  Sex: Female

DRUGS (3)
  1. MIRALAX [Suspect]
     Active Substance: POLYETHYLENE GLYCOL 3350
     Indication: Intestinal obstruction
     Route: 048
  2. LISINOPRIL [Concomitant]
     Active Substance: LISINOPRIL
  3. LOVASTATIN [Concomitant]
     Active Substance: LOVASTATIN

REACTIONS (2)
  - Gastric disorder [Unknown]
  - Off label use [Unknown]
